FAERS Safety Report 24173032 (Version 4)
Quarter: 2024Q4

REPORT INFORMATION
  Report Type: Report from Study
  Country: CA (occurrence: CA)
  Receive Date: 20240805
  Receipt Date: 20241225
  Transmission Date: 20250115
  Serious: Yes (Other)
  Sender: CSL BEHRING
  Company Number: CA-BEH-2024175712

PATIENT
  Age: 58 Year
  Sex: Female
  Weight: 111.7 kg

DRUGS (17)
  1. HIZENTRA [Suspect]
     Active Substance: HUMAN IMMUNOGLOBULIN G
     Indication: Primary immunodeficiency syndrome
     Dosage: 12 G, QW
     Route: 065
     Dates: start: 20240521
  2. HIZENTRA [Suspect]
     Active Substance: HUMAN IMMUNOGLOBULIN G
     Dosage: 14 G, QW
     Route: 065
     Dates: start: 20240521
  3. HIZENTRA [Suspect]
     Active Substance: HUMAN IMMUNOGLOBULIN G
     Dosage: 14 GM QW
     Route: 058
     Dates: start: 20240521, end: 202408
  4. HIZENTRA [Suspect]
     Active Substance: HUMAN IMMUNOGLOBULIN G
     Dosage: 14 GM QW
     Route: 058
     Dates: start: 202408
  5. PLAQUENIL [Concomitant]
     Active Substance: HYDROXYCHLOROQUINE SULFATE
  6. FOLIC ACID [Concomitant]
     Active Substance: FOLIC ACID
  7. FERAMAX [Concomitant]
     Active Substance: IRON\POLYSACCHARIDES
  8. CYMBALTA [Concomitant]
     Active Substance: DULOXETINE HYDROCHLORIDE
  9. MICARDIS [Concomitant]
     Active Substance: TELMISARTAN
  10. VITAMIN B12 [Concomitant]
     Active Substance: CYANOCOBALAMIN
     Dosage: UNK, EVERY 2 WEEK
  11. ENBREL [Concomitant]
     Active Substance: ETANERCEPT
     Dosage: UNK, QW
  12. METHOTREXATE SODIUM [Concomitant]
     Active Substance: METHOTREXATE SODIUM
  13. VITAMIN D NOS [Concomitant]
     Active Substance: CHOLECALCIFEROL\ERGOCALCIFEROL
     Dosage: UNK, EVERY 2 WEEK
  14. BACLOFEN [Concomitant]
     Active Substance: BACLOFEN
  15. SYMBICORT [Concomitant]
     Active Substance: BUDESONIDE\FORMOTEROL FUMARATE DIHYDRATE
     Dosage: PRN
  16. ENSTILAR [Concomitant]
     Active Substance: BETAMETHASONE DIPROPIONATE\CALCIPOTRIENE HYDRATE
  17. IRON [Concomitant]
     Active Substance: IRON

REACTIONS (9)
  - Deafness unilateral [Unknown]
  - Nephrolithiasis [Unknown]
  - Acoustic neuroma [Not Recovered/Not Resolved]
  - Infusion site reaction [Unknown]
  - Sinusitis [Unknown]
  - Sinusitis [Unknown]
  - Laryngitis [Unknown]
  - Hypoaesthesia [Not Recovered/Not Resolved]
  - Hypoaesthesia oral [Not Recovered/Not Resolved]

NARRATIVE: CASE EVENT DATE: 20240101
